FAERS Safety Report 4433876-2 (Version None)
Quarter: 2004Q3

REPORT INFORMATION
  Report Type: 
  Country: None (occurrence: None)
  Receive Date: 20040825
  Receipt Date: 20040805
  Transmission Date: 20050211
  Serious: Yes (Hospitalization)
  Sender: FDA-Public Use
  Company Number: A01200403744

PATIENT
  Age: 87 Year
  Sex: Male

DRUGS (6)
  1. PLAVIX [Suspect]
     Indication: CEREBRAL INFARCTION
     Dosage: SEE IMAGE
     Route: 048
     Dates: start: 20040410, end: 20040410
  2. PLAVIX [Suspect]
     Indication: CEREBRAL INFARCTION
     Dosage: SEE IMAGE
     Route: 048
     Dates: start: 20040429, end: 20040524
  3. ZOLPIDEM TARTRATE [Concomitant]
  4. ZOCOR [Concomitant]
  5. LACTULOSE [Concomitant]
  6. CALCIGRAN (CALCIUM CARBONATE) [Concomitant]

REACTIONS (7)
  - BLOOD CALCIUM DECREASED [None]
  - INFARCTION [None]
  - LOCALISED OSTEOARTHRITIS [None]
  - NEPHRITIS [None]
  - PNEUMONIA [None]
  - POLYARTHRITIS [None]
  - URTICARIA [None]
